FAERS Safety Report 22608832 (Version 1)
Quarter: 2023Q2

REPORT INFORMATION
  Report Type: Report from Study
  Country: US (occurrence: US)
  Receive Date: 20230616
  Receipt Date: 20230616
  Transmission Date: 20230721
  Serious: Yes (Other)
  Sender: FDA-Public Use
  Company Number: US-ABBVIE-5290760

PATIENT
  Age: 32 Year
  Sex: Male

DRUGS (2)
  1. RINVOQ [Suspect]
     Active Substance: UPADACITINIB
     Indication: Crohn^s disease
     Dosage: TIME INTERVAL: 0.02222222 DAYS
     Route: 048
     Dates: start: 20230605, end: 20230607
  2. RINVOQ [Suspect]
     Active Substance: UPADACITINIB
     Indication: Crohn^s disease
     Dosage: 45 MILLIGRAM
     Route: 048
     Dates: start: 20230602, end: 20230607

REACTIONS (12)
  - Visual impairment [Recovering/Resolving]
  - Erythema [Unknown]
  - Flushing [Recovering/Resolving]
  - Disturbance in attention [Unknown]
  - Rash [Recovering/Resolving]
  - Visual impairment [Not Recovered/Not Resolved]
  - Pyrexia [Recovering/Resolving]
  - Vision blurred [Recovering/Resolving]
  - Feeling hot [Recovering/Resolving]
  - Visual impairment [Recovering/Resolving]
  - Confusional state [Unknown]
  - Drug hypersensitivity [Unknown]

NARRATIVE: CASE EVENT DATE: 20230601
